FAERS Safety Report 20964503 (Version 1)
Quarter: 2022Q2

REPORT INFORMATION
  Report Type: Report from Study
  Country: None (occurrence: JP)
  Receive Date: 20220615
  Receipt Date: 20220615
  Transmission Date: 20220721
  Serious: Yes (Hospitalization)
  Sender: FDA-Public Use
  Company Number: JP-Dermavant Sciences, Inc.-2129947

PATIENT
  Age: 53 Year
  Sex: Male
  Weight: 54.7 kg

DRUGS (3)
  1. VTAMA [Suspect]
     Active Substance: TAPINAROF
     Indication: Psoriasis
     Route: 061
     Dates: start: 20220323, end: 20220524
  2. Bilanoa (Bilastine) [Concomitant]
     Route: 048
     Dates: start: 20220126
  3. Dermavate Scalp (Clobetasol Propionate) [Concomitant]
     Route: 061
     Dates: start: 20220406

REACTIONS (1)
  - Dermatitis contact [Recovered/Resolved]

NARRATIVE: CASE EVENT DATE: 20220430
